FAERS Safety Report 5895811-X (Version None)
Quarter: 2008Q3

REPORT INFORMATION
  Report Type: 
  Country: None (occurrence: None)
  Receive Date: 20080828
  Receipt Date: 20080407
  Transmission Date: 20090109
  Serious: Yes (Other)
  Sender: FDA-Public Use
  Company Number: 200812282US

PATIENT
  Age: 29 Year
  Sex: Female
  Weight: 48 kg

DRUGS (7)
  1. LASIX [Suspect]
     Indication: OEDEMA
     Dates: start: 20071101, end: 20071101
  2. REGLAN [Suspect]
  3. PROVIGIL [Suspect]
     Indication: HYPERSOMNIA
     Dosage: 200 MG QD PO
     Route: 047
     Dates: start: 20071016, end: 20071029
  4. PROVIGIL [Suspect]
     Indication: HYPERSOMNIA
     Dosage: 400 MG QD PO
     Route: 048
     Dates: start: 20071030, end: 20071106
  5. PROZAC [Concomitant]
  6. BUPROPION (WELLBUTRIN /00700501/) [Concomitant]
  7. MULTI-VITAMINS [Concomitant]

REACTIONS (7)
  - DRUG INEFFECTIVE [None]
  - DYSKINESIA [None]
  - DYSTONIA [None]
  - HYPOTENSION [None]
  - MUSCLE RIGIDITY [None]
  - PLEURAL EFFUSION [None]
  - POSTURE ABNORMAL [None]
